FAERS Safety Report 18479333 (Version 1)
Quarter: 2020Q4

REPORT INFORMATION
  Report Type: Report from Study
  Country: IT (occurrence: IT)
  Receive Date: 20201109
  Receipt Date: 20201109
  Transmission Date: 20210114
  Serious: Yes (Other)
  Sender: FDA-Public Use
  Company Number: IT-ACCORD-207679

PATIENT
  Age: 84 Year
  Sex: Male
  Weight: 0 kg

DRUGS (7)
  1. DELTACORTENE [Concomitant]
     Active Substance: PREDNISONE
     Dosage: STRENGTH: 5 MG
  2. CLOPIDOGREL [Suspect]
     Active Substance: CLOPIDOGREL BISULFATE
     Indication: ANTIPLATELET THERAPY
     Route: 048
  3. AMLODIPINE [Concomitant]
     Active Substance: AMLODIPINE BESYLATE
  4. UROREC [Concomitant]
     Active Substance: SILODOSIN
     Dosage: STRENGTH: 8 MG
  5. LENDORMIN [Concomitant]
     Active Substance: BROTIZOLAM
     Dosage: STRENGTH: 0.25 MG
  6. OLPRESS [Concomitant]
     Active Substance: OLMESARTAN MEDOXOMIL
     Dosage: STRENGTH:  10 MG
  7. CYMBALTA [Concomitant]
     Active Substance: DULOXETINE HYDROCHLORIDE
     Dosage: STRENGTH: 30 MG

REACTIONS (5)
  - Contusion [Recovered/Resolved with Sequelae]
  - Head injury [Recovered/Resolved with Sequelae]
  - Pain in extremity [Recovered/Resolved with Sequelae]
  - Subdural haematoma [Recovered/Resolved with Sequelae]
  - Skin abrasion [Recovered/Resolved with Sequelae]

NARRATIVE: CASE EVENT DATE: 20190826
